FAERS Safety Report 23803638 (Version 5)
Quarter: 2024Q4

REPORT INFORMATION
  Report Type: Report from Study
  Country: CA (occurrence: CA)
  Receive Date: 20240501
  Receipt Date: 20241013
  Transmission Date: 20250115
  Serious: Yes (Other)
  Sender: UCB
  Company Number: CA-UCBSA-2023050544

PATIENT
  Sex: Female

DRUGS (6)
  1. CERTOLIZUMAB PEGOL [Suspect]
     Active Substance: CERTOLIZUMAB PEGOL
     Indication: Ankylosing spondylitis
     Dosage: 400 MILLIGRAM, EV 2 WEEKS(QOW)
     Route: 058
     Dates: start: 20231012
  2. CERTOLIZUMAB PEGOL [Suspect]
     Active Substance: CERTOLIZUMAB PEGOL
     Indication: Ankylosing spondylitis
     Dosage: 200 MILLIGRAM, EV 2 WEEKS(QOW)
     Route: 058
  3. CERTOLIZUMAB PEGOL [Suspect]
     Active Substance: CERTOLIZUMAB PEGOL
     Dosage: RESTART DOSE
     Route: 058
     Dates: start: 2024, end: 202406
  4. CERTOLIZUMAB PEGOL [Suspect]
     Active Substance: CERTOLIZUMAB PEGOL
     Dosage: 200 MILLIGRAM, EV 4 WEEKS
     Route: 058
     Dates: start: 20240731, end: 202408
  5. SERTRALINE [Concomitant]
     Active Substance: SERTRALINE HYDROCHLORIDE
     Indication: Product used for unknown indication
     Dosage: UNK
  6. SYNTHROID [Concomitant]
     Active Substance: LEVOTHYROXINE SODIUM
     Indication: Product used for unknown indication
     Dosage: UNK

REACTIONS (18)
  - Premature separation of placenta [Unknown]
  - Caesarean section [Unknown]
  - Premature delivery [Unknown]
  - Ankylosing spondylitis [Unknown]
  - Mastitis fungal [Unknown]
  - Injection site pain [Not Recovered/Not Resolved]
  - Malaise [Unknown]
  - Asthenia [Unknown]
  - Fatigue [Not Recovered/Not Resolved]
  - Influenza [Unknown]
  - Nasopharyngitis [Unknown]
  - Bronchitis [Unknown]
  - Arthralgia [Not Recovered/Not Resolved]
  - Pain [Not Recovered/Not Resolved]
  - Maternal exposure during pregnancy [Unknown]
  - Device difficult to use [Unknown]
  - Off label use [Unknown]
  - Maternal exposure during breast feeding [Unknown]

NARRATIVE: CASE EVENT DATE: 20230101
